FAERS Safety Report 5421881-9 (Version None)
Quarter: 2007Q3

REPORT INFORMATION
  Report Type: 
  Country: None (occurrence: None)
  Receive Date: 20070817
  Receipt Date: 20070809
  Transmission Date: 20080115
  Serious: Yes (Hospitalization)
  Sender: FDA-Public Use
  Company Number: 2007SP007552

PATIENT
  Age: 40 Year
  Sex: Male
  Weight: 82.4 kg

DRUGS (3)
  1. TEMOZOLOMIDE [Suspect]
     Indication: METASTATIC MALIGNANT MELANOMA
     Dosage: 320 MG;
     Dates: start: 20051215, end: 20070711
  2. DOMPERIDONE [Concomitant]
  3. PREDNISOLONE [Concomitant]

REACTIONS (5)
  - ANAEMIA [None]
  - BLOOD LACTATE DEHYDROGENASE INCREASED [None]
  - HYPERBILIRUBINAEMIA [None]
  - NAUSEA [None]
  - VOMITING [None]
